FAERS Safety Report 6574606-8 (Version None)
Quarter: 2010Q1

REPORT INFORMATION
  Report Type: 
  Country: None (occurrence: None)
  Receive Date: 20100209
  Receipt Date: 20100202
  Transmission Date: 20100710
  Serious: Yes (Disabling)
  Sender: FDA-Public Use
  Company Number: GB-TEVA-223055ISR

PATIENT
  Age: 13 Year
  Sex: Male
  Weight: 49.3 kg

DRUGS (1)
  1. METHOTREXATE [Suspect]
     Indication: ARTHRITIS
     Route: 058
     Dates: start: 20050123, end: 20071030

REACTIONS (1)
  - CARDIOVASCULAR DISORDER [None]
